FAERS Safety Report 16140196 (Version 2)
Quarter: 2020Q1

REPORT INFORMATION
  Report Type: Report from Study
  Country: PT (occurrence: PT)
  Receive Date: 20190401
  Receipt Date: 20200211
  Transmission Date: 20200409
  Serious: Yes (Hospitalization)
  Sender: FDA-Public Use
  Company Number: PT-TEVA-2019-PT-1031494

PATIENT
  Age: 60 Year
  Sex: Female

DRUGS (8)
  1. DOCETAXEL. [Suspect]
     Active Substance: DOCETAXEL
     Indication: BREAST CANCER METASTATIC
     Dosage: DATE OF MOST RECENT DOSE PRIOR TO EVENT:04/MAY/2017
     Route: 042
     Dates: start: 20170120
  2. OMEPRAZOL [Concomitant]
     Active Substance: OMEPRAZOLE
     Route: 065
     Dates: start: 20170615
  3. OLANZAPINA [Concomitant]
     Active Substance: OLANZAPINE
     Route: 065
     Dates: start: 20170615
  4. PERTUZUMAB. [Suspect]
     Active Substance: PERTUZUMAB
     Indication: BREAST CANCER METASTATIC
     Dosage: FREQUENCY: Q3W - EVERY 3 WEEKS MOST RECENT DOSE PRIOR TO THE EVENT: 20170504
     Route: 042
     Dates: start: 20170213, end: 20170323
  5. TRASTUZUMAB EMTANSINE [Suspect]
     Active Substance: ADO-TRASTUZUMAB EMTANSINE
     Indication: BREAST CANCER METASTATIC
     Route: 042
     Dates: start: 20170731
  6. PIPERACILLIN. [Concomitant]
     Active Substance: PIPERACILLIN SODIUM
     Indication: LARGE INTESTINE INFECTION
     Dosage: ONGOING = NOT CHECKED
     Route: 065
  7. TRASTUZUMAB EMTANSINE [Suspect]
     Active Substance: ADO-TRASTUZUMAB EMTANSINE
     Dosage: MOST RECENT DOSE PRIOR TO EVENT : 04/MAY/2017; 6 MG/KG PER 3 WEEKS
     Route: 042
     Dates: start: 20170120
  8. TAZOBACTAM [Concomitant]
     Active Substance: TAZOBACTAM
     Indication: LARGE INTESTINE INFECTION
     Dosage: ONGOING = NOT CHECKED
     Route: 065

REACTIONS (6)
  - Ejection fraction decreased [Recovered/Resolved]
  - General physical health deterioration [Recovered/Resolved]
  - Diarrhoea [Recovering/Resolving]
  - Large intestine infection [Recovered/Resolved]
  - Ejection fraction decreased [Recovered/Resolved]
  - Colitis [Recovered/Resolved]

NARRATIVE: CASE EVENT DATE: 20170413
